FAERS Safety Report 5472401-4 (Version None)
Quarter: 2007Q4

REPORT INFORMATION
  Report Type: 
  Country: None (occurrence: None)
  Receive Date: 20071001
  Receipt Date: 20070926
  Transmission Date: 20080405
  Serious: Yes (Death, Hospitalization)
  Sender: FDA-Public Use
  Company Number: US-BAYER-200616756BWH

PATIENT
  Age: 63 Year
  Sex: Male
  Weight: 154 kg

DRUGS (1)
  1. NEXAVAR [Suspect]
     Indication: RENAL CELL CARCINOMA STAGE UNSPECIFIED
     Dosage: TOTAL DAILY DOSE: 800 MG  UNIT DOSE: 200 MG
     Route: 048
     Dates: start: 20060701, end: 20060901

REACTIONS (4)
  - BACTERAEMIA [None]
  - PAIN IN EXTREMITY [None]
  - RENAL CELL CARCINOMA STAGE UNSPECIFIED [None]
  - URINARY TRACT INFECTION [None]
